FAERS Safety Report 7018262-3 (Version None)
Quarter: 2010Q3

REPORT INFORMATION
  Report Type: 
  Country: None (occurrence: None)
  Receive Date: 20100928
  Receipt Date: 20100920
  Transmission Date: 20110219
  Serious: Yes (Hospitalization)
  Sender: FDA-Public Use
  Company Number: FR-JNJFOC-20100907183

PATIENT
  Sex: Male

DRUGS (7)
  1. DURAGESIC-100 [Suspect]
     Indication: PAIN
     Route: 062
  2. DURAGESIC-100 [Suspect]
     Route: 062
  3. MORPHINE [Suspect]
     Indication: PAIN
     Route: 048
  4. MORPHINE [Suspect]
     Route: 048
  5. FORLAX [Concomitant]
     Route: 048
  6. FORLAX [Concomitant]
     Route: 048
  7. FORLAX [Concomitant]
     Route: 048

REACTIONS (1)
  - FAECALOMA [None]
